FAERS Safety Report 21225443 (Version 1)
Quarter: 2022Q3

REPORT INFORMATION
  Report Type: Spontaneous
  Country: IE (occurrence: IE)
  Receive Date: 20220818
  Receipt Date: 20220818
  Transmission Date: 20221026
  Serious: Yes (Hospitalization, Other)
  Sender: FDA-Public Use
  Company Number: None

PATIENT
  Age: 81 Year
  Sex: Male

DRUGS (1)
  1. IBUPROFEN [Suspect]
     Active Substance: IBUPROFEN
     Indication: Product used for unknown indication
     Dosage: 2 DOSAGE FORM (TABLET)
     Route: 048

REACTIONS (3)
  - Oesophageal oedema [Recovered/Resolved]
  - Oesophageal obstruction [Recovered/Resolved]
  - Foreign body in throat [Recovered/Resolved]
